FAERS Safety Report 14850570 (Version 1)
Quarter: 2018Q2

REPORT INFORMATION
  Report Type: Report from Study
  Country: IT (occurrence: IT)
  Receive Date: 20180506
  Receipt Date: 20180506
  Transmission Date: 20180711
  Serious: Yes (Death)
  Sender: FDA-Public Use
  Company Number: IT-TEVA-2018-IT-889844

PATIENT
  Age: 36 Year
  Sex: Male

DRUGS (8)
  1. CLONAZEPAM. [Suspect]
     Active Substance: CLONAZEPAM
     Indication: INTENTIONAL PRODUCT MISUSE
     Route: 065
  2. PREGABALIN. [Suspect]
     Active Substance: PREGABALIN
     Indication: INTENTIONAL PRODUCT MISUSE
     Route: 065
  3. MORPHINE [Suspect]
     Active Substance: MORPHINE
     Indication: INTENTIONAL PRODUCT MISUSE
     Route: 065
  4. META-CHLOROPHENYLPIPERAZINE [Suspect]
     Active Substance: META-CHLOROPHENYLPIPERAZINE
     Indication: INTENTIONAL PRODUCT MISUSE
     Route: 065
  5. LEVOMEPROMAZINE [Suspect]
     Active Substance: LEVOMEPROMAZINE
     Indication: INTENTIONAL PRODUCT MISUSE
     Route: 065
  6. TRAZODONE [Suspect]
     Active Substance: TRAZODONE HYDROCHLORIDE
     Indication: INTENTIONAL PRODUCT MISUSE
     Route: 065
  7. ALPRAZOLAM. [Suspect]
     Active Substance: ALPRAZOLAM
     Indication: INTENTIONAL PRODUCT MISUSE
     Route: 065
  8. MIRTAZAPINE. [Suspect]
     Active Substance: MIRTAZAPINE
     Indication: INTENTIONAL PRODUCT MISUSE
     Route: 065

REACTIONS (2)
  - Acute pulmonary oedema [Fatal]
  - Intentional product misuse [Fatal]
